FAERS Safety Report 25386998 (Version 1)
Quarter: 2025Q2

REPORT INFORMATION
  Report Type: Spontaneous
  Country: US (occurrence: US)
  Receive Date: 20250602
  Receipt Date: 20250602
  Transmission Date: 20250716
  Serious: Yes (Other)
  Sender: MERCK SHARP & DOHME LLC
  Company Number: US-009507513-2290246

PATIENT
  Age: 47 Year
  Sex: Female

DRUGS (1)
  1. KEYTRUDA [Suspect]
     Active Substance: PEMBROLIZUMAB
     Dosage: 1 INJECTION EVERY 21 DAYS
     Route: 065

REACTIONS (1)
  - Radiotherapy [Unknown]

NARRATIVE: CASE EVENT DATE: 20250421
